FAERS Safety Report 6075820-0 (Version None)
Quarter: 2009Q1

REPORT INFORMATION
  Report Type: 
  Country: None (occurrence: None)
  Receive Date: 20090212
  Receipt Date: 20090203
  Transmission Date: 20090719
  Serious: Yes (Hospitalization, Other)
  Sender: FDA-Public Use
  Company Number: CA-ABBOTT-08P-028-0486052-00

PATIENT
  Sex: Male
  Weight: 49.94 kg

DRUGS (4)
  1. HUMIRA [Suspect]
     Indication: PSORIATIC ARTHROPATHY
     Route: 058
     Dates: start: 20070221, end: 20081210
  2. IMURAN [Concomitant]
     Indication: DRUG USE FOR UNKNOWN INDICATION
     Route: 048
  3. NIZORAL CREAM [Concomitant]
     Indication: DANDRUFF
     Route: 061
  4. ELECOM [Concomitant]
     Indication: DRUG USE FOR UNKNOWN INDICATION
     Route: 061

REACTIONS (6)
  - BLOOD CREATININE INCREASED [None]
  - DRUG SPECIFIC ANTIBODY PRESENT [None]
  - GLOMERULONEPHRITIS PROLIFERATIVE [None]
  - NAUSEA [None]
  - UNEVALUABLE EVENT [None]
  - VOMITING [None]
